FAERS Safety Report 15004936 (Version 1)
Quarter: 2018Q2

REPORT INFORMATION
  Report Type: Spontaneous
  Country: US (occurrence: US)
  Receive Date: 20180613
  Receipt Date: 20180613
  Transmission Date: 20180711
  Serious: No
  Sender: FDA-Public Use
  Company Number: US-COVIS PHARMA B.V.-2017COV00135

PATIENT
  Sex: Female
  Weight: 92.97 kg

DRUGS (3)
  1. UNSPECIFIED ANTI-MIGRAINE PREPARATIONS [Concomitant]
  2. PRILOSEC [Suspect]
     Active Substance: OMEPRAZOLE MAGNESIUM
     Indication: DYSPEPSIA
     Route: 048
  3. TUMS [Concomitant]
     Active Substance: CALCIUM CARBONATE
     Dosage: UNK
     Dates: start: 201604, end: 201606

REACTIONS (1)
  - Drug ineffective [Unknown]
